FAERS Safety Report 12520454 (Version 2)
Quarter: 2016Q3

REPORT INFORMATION
  Report Type: Spontaneous
  Country: CO (occurrence: CO)
  Receive Date: 20160701
  Receipt Date: 20160708
  Transmission Date: 20161109
  Serious: Yes (Other)
  Sender: FDA-Public Use
  Company Number: CO-009507513-1606COL013368

PATIENT
  Age: 25 Year
  Sex: Female
  Weight: 56.2 kg

DRUGS (6)
  1. ONDANSETRON [Concomitant]
     Active Substance: ONDANSETRON
     Indication: PROPHYLACTIC CHEMOTHERAPY
     Dosage: 8 MG, UNK
     Route: 042
     Dates: start: 20160620, end: 20160620
  2. DEXAMETHASONE. [Concomitant]
     Active Substance: DEXAMETHASONE
     Indication: PROPHYLACTIC CHEMOTHERAPY
     Dosage: 8 MG, UNK
     Route: 042
     Dates: start: 20160620, end: 20160620
  3. SALBUTAMOL ALDO UNION [Concomitant]
     Indication: ASTHMA
  4. TEMODAL [Suspect]
     Active Substance: TEMOZOLOMIDE
     Indication: BRAIN NEOPLASM MALIGNANT
     Dosage: 320 MG, DAY 1 TO 5 EVERY 28 DAYS
     Route: 042
     Dates: start: 20160620
  5. TEMODAL [Suspect]
     Active Substance: TEMOZOLOMIDE
     Dosage: 320 MG TOTAL DOSE IN 250 CC STERILE WATER
     Route: 042
     Dates: start: 20160621
  6. RANITIDINE. [Concomitant]
     Active Substance: RANITIDINE
     Indication: PROPHYLACTIC CHEMOTHERAPY
     Dosage: 50 MG, UNK
     Route: 042
     Dates: start: 20160620, end: 20160620

REACTIONS (2)
  - Type I hypersensitivity [Recovering/Resolving]
  - Bronchospasm [Recovered/Resolved]

NARRATIVE: CASE EVENT DATE: 20160620
